FAERS Safety Report 9932073 (Version 1)
Quarter: 2014Q1

REPORT INFORMATION
  Report Type: Spontaneous
  Country: US (occurrence: US)
  Receive Date: 20140228
  Receipt Date: 20140228
  Transmission Date: 20141002
  Serious: No
  Sender: FDA-Public Use
  Company Number: US-ABBVIE-13P-163-1109865-00

PATIENT
  Age: 74 Year
  Sex: Male
  Weight: 63.56 kg

DRUGS (2)
  1. ANDROGEL [Suspect]
     Indication: BLOOD TESTOSTERONE DECREASED
     Route: 061
     Dates: start: 201304, end: 201305
  2. ANDROGEL [Suspect]
     Indication: ASTHENIA
     Route: 061
     Dates: start: 20130531, end: 20130621

REACTIONS (2)
  - Blood testosterone increased [Unknown]
  - Haematocrit increased [Unknown]
